FAERS Safety Report 9776647 (Version 2)
Quarter: 2013Q4

REPORT INFORMATION
  Report Type: Spontaneous
  Country: US (occurrence: US)
  Receive Date: 20131220
  Receipt Date: 20131220
  Transmission Date: 20140711
  Serious: Yes (Other)
  Sender: FDA-Public Use
  Company Number: US-RB-060951-13

PATIENT
  Age: 28 Year
  Sex: Female

DRUGS (2)
  1. SUBOXONE FILM [Suspect]
     Indication: DRUG DEPENDENCE
     Dosage: SUBOXONE FILM; CUTTING THE FILM, TAKING 1/2 STRIP DAILY
     Route: 060
     Dates: start: 2012
  2. PRENATAL VITAMINS [Concomitant]
     Indication: PRENATAL CARE
     Dosage: TAKING 1 TABLET DAILY; FURTHER DOSING DETAILS UNKNOWN
     Route: 065
     Dates: start: 201207, end: 2013

REACTIONS (3)
  - Wrong technique in drug usage process [Not Recovered/Not Resolved]
  - Maternal exposure during pregnancy [Recovered/Resolved]
  - Premature delivery [Recovered/Resolved]
